FAERS Safety Report 13048361 (Version 2)
Quarter: 2016Q4

REPORT INFORMATION
  Report Type: Spontaneous
  Country: IL (occurrence: IL)
  Receive Date: 20161220
  Receipt Date: 20161229
  Transmission Date: 20170207
  Serious: Yes (Hospitalization, Other)
  Sender: FDA-Public Use
  Company Number: IL-ASTRAZENECA-2016SF31677

PATIENT
  Age: 44 Year
  Sex: Male
  Weight: 91.5 kg

DRUGS (4)
  1. PLAVIX [Concomitant]
     Active Substance: CLOPIDOGREL BISULFATE
     Route: 048
  2. LIPITOR [Interacting]
     Active Substance: ATORVASTATIN CALCIUM
     Route: 048
     Dates: start: 20161209, end: 20161213
  3. BRILINTA [Suspect]
     Active Substance: TICAGRELOR
     Indication: ACUTE MYOCARDIAL INFARCTION
     Route: 048
     Dates: start: 20161209
  4. BRILINTA [Interacting]
     Active Substance: TICAGRELOR
     Indication: ACUTE MYOCARDIAL INFARCTION
     Route: 048
     Dates: start: 20161209

REACTIONS (3)
  - Drug interaction [Unknown]
  - Rhabdomyolysis [Recovered/Resolved]
  - Acute myocardial infarction [Unknown]

NARRATIVE: CASE EVENT DATE: 20161212
